FAERS Safety Report 9901926 (Version 3)
Quarter: 2015Q3

REPORT INFORMATION
  Report Type: Spontaneous
  Country: US (occurrence: US)
  Receive Date: 20140217
  Receipt Date: 20150810
  Transmission Date: 20151125
  Serious: No
  Sender: FDA-Public Use
  Company Number: US-GILEAD-2011-0045394

PATIENT
  Age: 74 Year
  Sex: Female

DRUGS (12)
  1. TOBI [Concomitant]
     Active Substance: TOBRAMYCIN
  2. LETAIRIS [Suspect]
     Active Substance: AMBRISENTAN
     Indication: PULMONARY HYPERTENSION
     Dosage: 5 MG, UNK
     Route: 048
     Dates: start: 20110825
  3. LETAIRIS [Suspect]
     Active Substance: AMBRISENTAN
     Indication: BRONCHIECTASIS
  4. TORSEMIDE. [Concomitant]
     Active Substance: TORSEMIDE
  5. SPIRONOLACTONE. [Concomitant]
     Active Substance: SPIRONOLACTONE
  6. ADVAIR HFA [Concomitant]
     Active Substance: FLUTICASONE PROPIONATE\SALMETEROL XINAFOATE
  7. GUAIFENESIN. [Concomitant]
     Active Substance: GUAIFENESIN
  8. LETAIRIS [Suspect]
     Active Substance: AMBRISENTAN
     Indication: UNEVALUABLE EVENT
  9. SPIRIVA [Concomitant]
     Active Substance: TIOTROPIUM BROMIDE MONOHYDRATE
  10. CIALIS [Concomitant]
     Active Substance: TADALAFIL
  11. WARFARIN [Concomitant]
     Active Substance: WARFARIN
  12. VITAMIN K+D [Concomitant]

REACTIONS (3)
  - Peripheral swelling [Unknown]
  - Pain in extremity [Unknown]
  - Muscle spasms [Unknown]

NARRATIVE: CASE EVENT DATE: 20110901
